FAERS Safety Report 8469671-7 (Version None)
Quarter: 2012Q2

REPORT INFORMATION
  Report Type: 
  Country: None (occurrence: None)
  Receive Date: 20120626
  Receipt Date: 20120613
  Transmission Date: 20120825
  Serious: Yes (Life-Threatening, Hospitalization, Disabling)
  Sender: FDA-Public Use
  Company Number: GB-ROCHE-1060104

PATIENT
  Age: 72 Year
  Sex: Male
  Weight: 88.4 kg

DRUGS (10)
  1. SYNALAR GEL [Concomitant]
     Dosage: UNKNOWN %
     Dates: start: 20120314
  2. LORATADINE [Concomitant]
     Dates: start: 20100101
  3. BETNOVATE [Concomitant]
     Dates: start: 20120314
  4. VEMURAFENIB [Suspect]
     Indication: MALIGNANT MELANOMA
     Dosage: LAST DOSE PRIOR TO THE SAE ON 07/JUN/2012
     Route: 048
     Dates: start: 20120214, end: 20120612
  5. ENOXAPARIN SODIUM [Suspect]
     Indication: PULMONARY EMBOLISM
     Route: 065
     Dates: start: 20120412
  6. PERINDOPRIL ERBUMINE [Concomitant]
     Dates: start: 20040101
  7. PREDNISOLONE [Concomitant]
     Dates: start: 20120314
  8. FELODIPINE [Concomitant]
     Dates: start: 20040101
  9. CETRABEN EMOLLIENT CREAM (UNITED KINGDOM) [Concomitant]
     Dosage: UNKNOWN %
     Dates: start: 20120314
  10. VIAGRA [Concomitant]
     Dates: start: 20100101

REACTIONS (2)
  - CEREBRAL HAEMORRHAGE [None]
  - PULMONARY EMBOLISM [None]
